FAERS Safety Report 7354307-9 (Version None)
Quarter: 2011Q1

REPORT INFORMATION
  Report Type: 
  Country: None (occurrence: None)
  Receive Date: 20110316
  Receipt Date: 20110307
  Transmission Date: 20110831
  Serious: No
  Sender: FDA-Public Use
  Company Number: US-BIOGENIDEC-2011BI008793

PATIENT
  Age: 31 Year
  Sex: Female

DRUGS (3)
  1. AVONEX [Suspect]
     Indication: MULTIPLE SCLEROSIS
     Route: 030
     Dates: start: 20100609
  2. CALCIUM [Concomitant]
     Indication: OSTEOPENIA
     Dates: start: 20090101
  3. VITAMIN D [Concomitant]
     Indication: OSTEOPENIA
     Dates: start: 20090101

REACTIONS (5)
  - STRESS FRACTURE [None]
  - PAIN IN EXTREMITY [None]
  - ANXIETY [None]
  - LIMB INJURY [None]
  - DEPRESSION [None]
